FAERS Safety Report 8383733-4 (Version None)
Quarter: 2012Q1

REPORT INFORMATION
  Report Type: 
  Country: None (occurrence: None)
  Receive Date: 20120323
  Receipt Date: 20110524
  Transmission Date: 20120608
  Serious: Yes (Hospitalization, Other)
  Sender: FDA-Public Use
  Company Number: 163-21880-11030558

PATIENT
  Age: 72 Year
  Sex: Male
  Weight: 106.1417 kg

DRUGS (10)
  1. LEVOTHYROXINE SODIUM [Concomitant]
  2. DEXAMETHASONE [Concomitant]
  3. ASPIRIN [Concomitant]
  4. PREDNISONE TAB [Concomitant]
  5. REVLIMID [Suspect]
     Indication: MULTIPLE MYELOMA
     Dosage: 10 MG, 7 DAYS ON 7 DAYS OFF, PO
     Route: 048
     Dates: start: 20110216, end: 20110304
  6. B COMPLEX ELX [Concomitant]
  7. METFORMIN HCL [Concomitant]
  8. VITAMIN B12 [Concomitant]
  9. BLOOD (BLOOD AND RELATED PRODUCTS) [Concomitant]
  10. LISINOPIRL (LISINOPRIL) [Concomitant]

REACTIONS (5)
  - RENAL IMPAIRMENT [None]
  - MYOCARDIAL INFARCTION [None]
  - PLATELET COUNT DECREASED [None]
  - HAEMATOCHEZIA [None]
  - BLOOD GLUCOSE DECREASED [None]
